FAERS Safety Report 16837238 (Version 1)
Quarter: 2019Q3

REPORT INFORMATION
  Report Type: Spontaneous
  Country: NO (occurrence: NO)
  Receive Date: 20190923
  Receipt Date: 20190923
  Transmission Date: 20191005
  Serious: No
  Sender: FDA-Public Use
  Company Number: NO-NOVEN PHARMACEUTICALS, INC.-NO2019000351

PATIENT

DRUGS (1)
  1. ESTRADIOL/NORETHISTERONE ACETATE [Suspect]
     Active Substance: ESTRADIOL\NORETHINDRONE ACETATE
     Indication: PRODUCT USED FOR UNKNOWN INDICATION
     Dosage: 50/250 MCG EVERYDAY
     Route: 062

REACTIONS (3)
  - Inappropriate schedule of product administration [Unknown]
  - Product adhesion issue [Unknown]
  - Product quality issue [Unknown]
